FAERS Safety Report 7240312-X (Version None)
Quarter: 2011Q1

REPORT INFORMATION
  Report Type: 
  Country: None (occurrence: None)
  Receive Date: 20110124
  Receipt Date: 20110112
  Transmission Date: 20110831
  Serious: Yes (Hospitalization)
  Sender: FDA-Public Use
  Company Number: US-CELGENEUS-163-21880-11011297

PATIENT
  Sex: Female
  Weight: 77.27 kg

DRUGS (10)
  1. PROZAC [Concomitant]
     Route: 065
  2. ADVAIR [Concomitant]
     Route: 065
  3. REVLIMID [Suspect]
     Indication: MULTIPLE MYELOMA
     Route: 048
     Dates: start: 20090827
  4. ZOMETA [Concomitant]
     Route: 065
  5. MULTI-VITAMIN [Concomitant]
     Route: 065
  6. DECADRON [Concomitant]
     Route: 065
  7. TRAZODONE [Concomitant]
     Route: 065
  8. NEXIUM [Concomitant]
     Route: 065
  9. CLARITIN [Concomitant]
     Route: 065
  10. ASPIRIN [Concomitant]
     Route: 065

REACTIONS (2)
  - PULMONARY CONGESTION [None]
  - INFLUENZA LIKE ILLNESS [None]
